FAERS Safety Report 7875720-7 (Version None)
Quarter: 2011Q4

REPORT INFORMATION
  Report Type: 
  Country: None (occurrence: None)
  Receive Date: 20111031
  Receipt Date: 20111019
  Transmission Date: 20120403
  Serious: Yes (Hospitalization, Other)
  Sender: FDA-Public Use
  Company Number: US-BAYER-2011-048409

PATIENT
  Age: 35 Year
  Sex: Female
  Weight: 63.492 kg

DRUGS (7)
  1. MULTI-VITAMINS [Concomitant]
     Dosage: UNK
     Route: 048
     Dates: end: 20091007
  2. YASMIN [Suspect]
     Dosage: UNK
     Dates: start: 20050401, end: 20091101
  3. EXCEDRIN (MIGRAINE) [Concomitant]
     Dosage: UNK
     Dates: start: 20060101
  4. IBUPROFEN (ADVIL) [Concomitant]
     Dosage: UNK
     Dates: start: 20000101
  5. MOTRIN [Concomitant]
     Dosage: UNK
     Dates: start: 20000101
  6. OMEPRAZOLE [Concomitant]
     Dosage: 20 MG, BID
     Route: 048
  7. YAZ [Suspect]
     Dosage: UNK
     Dates: start: 20050401, end: 20091101

REACTIONS (7)
  - PAIN [None]
  - CHOLECYSTITIS CHRONIC [None]
  - BILIARY COLIC [None]
  - GALLBLADDER DISORDER [None]
  - EMOTIONAL DISTRESS [None]
  - CHOLELITHIASIS [None]
  - INJURY [None]
